FAERS Safety Report 7416874-6 (Version None)
Quarter: 2011Q2

REPORT INFORMATION
  Report Type: 
  Country: None (occurrence: None)
  Receive Date: 20110415
  Receipt Date: 20110403
  Transmission Date: 20111010
  Serious: Yes (Hospitalization)
  Sender: FDA-Public Use
  Company Number: SK-JNJFOC-20110403647

PATIENT
  Sex: Female
  Weight: 115 kg

DRUGS (2)
  1. USTEKINUMAB [Suspect]
     Indication: PSORIASIS
     Route: 058
  2. INFLIXIMAB [Suspect]
     Indication: PSORIASIS
     Route: 042

REACTIONS (2)
  - PRECANCEROUS CELLS PRESENT [None]
  - UTERINE LEIOMYOMA [None]
